FAERS Safety Report 4792930-6 (Version None)
Quarter: 2005Q4

REPORT INFORMATION
  Report Type: 
  Country: None (occurrence: None)
  Receive Date: 20051010
  Receipt Date: 20050926
  Transmission Date: 20060501
  Serious: Yes (Hospitalization)
  Sender: FDA-Public Use
  Company Number: PHRM2005FR02576

PATIENT
  Age: 82 Year
  Sex: Female

DRUGS (13)
  1. ZOCOR [Concomitant]
     Route: 048
     Dates: end: 20050711
  2. ZOCOR [Concomitant]
     Route: 048
     Dates: start: 20050721, end: 20050802
  3. ENDOTELON [Concomitant]
     Route: 048
     Dates: end: 20050711
  4. ENDOTELON [Concomitant]
     Route: 048
     Dates: start: 20050721, end: 20050802
  5. ART 50 [Concomitant]
     Route: 048
     Dates: end: 20050711
  6. ART 50 [Concomitant]
     Route: 048
     Dates: start: 20050721, end: 20050802
  7. BACTRIM DS [Suspect]
     Dosage: 2 TAB/DAY
     Route: 048
     Dates: start: 20050713, end: 20050802
  8. TRIATEC [Suspect]
     Dosage: 5 MG, QD
     Route: 048
     Dates: start: 20050714, end: 20050721
  9. LEXOMIL [Suspect]
     Dosage: 0.5 TAB/DAY
     Route: 048
     Dates: start: 20050711, end: 20050802
  10. CIBADREX [Suspect]
     Dosage: 1 DF, QD
     Route: 048
     Dates: end: 20050711
  11. CIBADREX [Suspect]
     Dosage: 1 DF, QD
     Route: 048
     Dates: start: 20050721, end: 20050802
  12. GENTAMYCIN SULFATE [Suspect]
     Dosage: 180 MG/DAY
     Route: 042
     Dates: start: 20050715, end: 20050721
  13. STILNOX [Suspect]
     Dosage: 1 DF, QD
     Route: 048
     Dates: start: 20050711, end: 20050802

REACTIONS (5)
  - ANOREXIA [None]
  - BLOOD CREATININE INCREASED [None]
  - ESCHERICHIA URINARY TRACT INFECTION [None]
  - GENERAL PHYSICAL CONDITION ABNORMAL [None]
  - RENAL FAILURE ACUTE [None]
